FAERS Safety Report 6244781-3 (Version None)
Quarter: 2009Q2

REPORT INFORMATION
  Report Type: 
  Country: None (occurrence: None)
  Receive Date: 20090625
  Receipt Date: 20090617
  Transmission Date: 20091009
  Serious: Yes (Life-Threatening, Hospitalization)
  Sender: FDA-Public Use
  Company Number: US-NOVOPROD-286303

PATIENT
  Sex: Female
  Weight: 60.771 kg

DRUGS (6)
  1. NOVOLOG [Suspect]
     Indication: TYPE 1 DIABETES MELLITUS
     Dosage: 13 IU, QD (4U BREAKFAST + LUNCH; 5U DINNER)
     Route: 058
     Dates: start: 20060405, end: 20081113
  2. LANTUS [Concomitant]
     Indication: TYPE 1 DIABETES MELLITUS
     Dosage: 9 IU, QD (PM)
     Route: 058
     Dates: end: 20081113
  3. LANTUS [Concomitant]
     Dosage: 7 IU, QD HS
     Route: 058
  4. LISINOPRIL [Concomitant]
     Indication: DRUG USE FOR UNKNOWN INDICATION
     Dosage: 20 MG, QD
     Route: 048
  5. ORAL CONTRACEPTIVE NOS [Concomitant]
     Indication: CONTRACEPTION
     Route: 048
  6. NOVOLOG [Concomitant]
     Indication: TYPE 1 DIABETES MELLITUS
     Dosage: 1 IU PER 20G CARBS
     Route: 058
     Dates: start: 20090414

REACTIONS (5)
  - BLOOD GLUCOSE DECREASED [None]
  - DEVICE FAILURE [None]
  - HYPOGLYCAEMIC COMA [None]
  - MULTIPLE FRACTURES [None]
  - ROAD TRAFFIC ACCIDENT [None]
